FAERS Safety Report 9145332 (Version 2)
Quarter: 2013Q1

REPORT INFORMATION
  Report Type: Spontaneous
  Country: US (occurrence: None)
  Receive Date: 20130131
  Receipt Date: 20130311
  Transmission Date: 20140127
  Serious: Yes (Death)
  Sender: FDA-Public Use
  Company Number: US-JNJFOC-20130114328

PATIENT
  Sex: 0

DRUGS (2)
  1. DECITABINE [Suspect]
     Indication: ACUTE MYELOID LEUKAEMIA
     Dosage: 20  MG/M2,  IN  1 CYCLICAL,  INTRAVENOUS
     Route: 042
  2. SAPACITABINE [Suspect]
     Indication: ACUTE MYELOID LEUKAEMIA
     Dosage: 300  MG,  2 IN 1 DAY,  ORAL
     Route: 048

REACTIONS (1)
  - Caecitis [None]
